FAERS Safety Report 9306931 (Version 1)
Quarter: 2013Q2

REPORT INFORMATION
  Report Type: Spontaneous
  Country: AR (occurrence: AR)
  Receive Date: 20130523
  Receipt Date: 20130523
  Transmission Date: 20140414
  Serious: Yes (Other)
  Sender: FDA-Public Use
  Company Number: PHHY2013AR051828

PATIENT
  Sex: Male

DRUGS (2)
  1. TOFRANIL [Suspect]
     Dosage: 10 MG, UNK
     Route: 048
  2. TEGRETOL [Suspect]
     Dosage: 400 MG, UNK
     Route: 048

REACTIONS (2)
  - Hemiplegia [Unknown]
  - Gait disturbance [Unknown]
